FAERS Safety Report 11414766 (Version 10)
Quarter: 2017Q3

REPORT INFORMATION
  Report Type: Report from Study
  Country: CA (occurrence: CA)
  Receive Date: 20150825
  Receipt Date: 20170824
  Transmission Date: 20171127
  Serious: Yes (Other)
  Sender: FDA-Public Use
  Company Number: CA-ROCHE-1624892

PATIENT
  Age: 55 Year
  Sex: Female

DRUGS (5)
  1. DEXILANT [Concomitant]
     Active Substance: DEXLANSOPRAZOLE
     Route: 065
  2. RABEPRAZOLE [Concomitant]
     Active Substance: RABEPRAZOLE
  3. ESOMEPRAZOLE [Concomitant]
     Active Substance: ESOMEPRAZOLE
  4. ESBRIET [Suspect]
     Active Substance: PIRFENIDONE
     Indication: IDIOPATHIC PULMONARY FIBROSIS
     Route: 048
     Dates: start: 20131108
  5. ESBRIET [Suspect]
     Active Substance: PIRFENIDONE
     Dosage: THREE CAPSULES THREE TIMES PER DAY
     Route: 048

REACTIONS (17)
  - Lower respiratory tract infection [Unknown]
  - Decreased appetite [Not Recovered/Not Resolved]
  - Fatigue [Not Recovered/Not Resolved]
  - Dyspnoea exertional [Not Recovered/Not Resolved]
  - Rales [Unknown]
  - Cataract [Unknown]
  - Pneumothorax spontaneous [Unknown]
  - Atrial fibrillation [Unknown]
  - Feeling abnormal [Not Recovered/Not Resolved]
  - Dizziness [Not Recovered/Not Resolved]
  - Nasopharyngitis [Unknown]
  - Gastric disorder [Not Recovered/Not Resolved]
  - Vertigo [Not Recovered/Not Resolved]
  - Night sweats [Not Recovered/Not Resolved]
  - Chest pain [Unknown]
  - Cough [Unknown]
  - Insomnia [Not Recovered/Not Resolved]

NARRATIVE: CASE EVENT DATE: 2015
